FAERS Safety Report 8418894-1 (Version None)
Quarter: 2012Q2

REPORT INFORMATION
  Report Type: 
  Country: None (occurrence: None)
  Receive Date: 20120607
  Receipt Date: 20120530
  Transmission Date: 20120825
  Serious: Yes (Other)
  Sender: FDA-Public Use
  Company Number: US-FRI-1000030929

PATIENT
  Age: 57 Year
  Sex: Female

DRUGS (10)
  1. WELLBUTRIN [Concomitant]
  2. TOPAMAX [Concomitant]
  3. GEODON [Concomitant]
     Indication: SCHIZOPHRENIA
  4. PROZAC [Concomitant]
  5. TEMAZEPAM [Concomitant]
  6. PROMETRIUM [Concomitant]
  7. ASPIRIN [Concomitant]
  8. THYROID TAB [Suspect]
     Indication: HYPOTHYROIDISM
     Dates: start: 20090101, end: 20120301
  9. THYROID TAB [Suspect]
     Dosage: 180 MG
     Route: 048
     Dates: start: 20120301
  10. LIPITOR [Concomitant]
     Indication: BLOOD CHOLESTEROL INCREASED

REACTIONS (3)
  - WEIGHT INCREASED [None]
  - DRUG INEFFECTIVE [None]
  - WEIGHT DECREASED [None]
